FAERS Safety Report 6931113-8 (Version None)
Quarter: 2010Q3

REPORT INFORMATION
  Report Type: 
  Country: None (occurrence: None)
  Receive Date: 20100818
  Receipt Date: 20100812
  Transmission Date: 20110219
  Serious: Yes (Death)
  Sender: FDA-Public Use
  Company Number: DE-ELI_LILLY_AND_COMPANY-DE201007004284

PATIENT
  Sex: Female
  Weight: 56 kg

DRUGS (5)
  1. ALIMTA [Suspect]
     Indication: NEOPLASM MALIGNANT
     Dosage: 790 MG, DAILY (1/D)
     Route: 042
     Dates: start: 20100429
  2. ONDANSETRON [Concomitant]
     Dosage: 8 MG, UNKNOWN
     Route: 042
     Dates: start: 20100429
  3. FOLSAN [Concomitant]
     Dosage: 4 MG, UNKNOWN
     Route: 065
  4. VITAMIN B-12 [Concomitant]
     Dosage: UNK, UNKNOWN
     Route: 058
     Dates: start: 20100421
  5. DEXAMETHASONE TAB [Concomitant]
     Dosage: 4 MG, UNKNOWN
     Route: 030
     Dates: start: 20100429

REACTIONS (4)
  - MULTI-ORGAN FAILURE [None]
  - OFF LABEL USE [None]
  - PANCYTOPENIA [None]
  - TOXIC EPIDERMAL NECROLYSIS [None]
